FAERS Safety Report 7327811-7 (Version None)
Quarter: 2011Q1

REPORT INFORMATION
  Report Type: 
  Country: None (occurrence: None)
  Receive Date: 20110303
  Receipt Date: 20110228
  Transmission Date: 20110831
  Serious: No
  Sender: FDA-Public Use
  Company Number: US-PFIZER INC-2011043619

PATIENT
  Sex: Male
  Weight: 75 kg

DRUGS (3)
  1. ADVIL COLD AND SINUS [Suspect]
     Indication: SINUS DISORDER
     Dosage: UNK, DAILY
     Route: 048
     Dates: start: 20110227, end: 20110227
  2. FINASTERIDE [Concomitant]
     Dosage: UNK
  3. ADVIL COLD AND SINUS [Suspect]
     Dosage: UNK, DAILY
     Route: 048
     Dates: start: 20110227, end: 20110227

REACTIONS (1)
  - DRUG INEFFECTIVE [None]
